FAERS Safety Report 9645089 (Version 1)
Quarter: 2013Q4

REPORT INFORMATION
  Report Type: Spontaneous
  Country: US (occurrence: US)
  Receive Date: 20131025
  Receipt Date: 20131025
  Transmission Date: 20140711
  Serious: No
  Sender: FDA-Public Use
  Company Number: US-BAYER-2013-129799

PATIENT
  Age: 77 Year
  Sex: Female
  Weight: 51 kg

DRUGS (5)
  1. ALEVE CAPLET [Suspect]
     Indication: ARTHRITIS
     Dosage: 2 DF, BID
     Route: 048
     Dates: start: 20131014
  2. DIOVAN [Suspect]
  3. COREG [Concomitant]
  4. LIPITOR [Concomitant]
  5. COQ10 [Concomitant]

REACTIONS (2)
  - Incorrect dose administered [None]
  - Incorrect drug administration duration [None]
